FAERS Safety Report 5578532-2 (Version None)
Quarter: 2007Q4

REPORT INFORMATION
  Report Type: 
  Country: None (occurrence: None)
  Receive Date: 20071227
  Receipt Date: 20071210
  Transmission Date: 20080405
  Serious: Yes (Death)
  Sender: FDA-Public Use
  Company Number: 18075

PATIENT
  Age: 62 Year
  Sex: Female

DRUGS (7)
  1. DOXORUBICIN HCL [Suspect]
     Indication: CHRONIC LYMPHOCYTIC LEUKAEMIA TRANSFORMATION
     Dates: start: 20030901, end: 20040201
  2. VINCRISTINE [Suspect]
     Indication: CHRONIC LYMPHOCYTIC LEUKAEMIA TRANSFORMATION
     Dates: start: 20030901, end: 20040202
  3. CYCLOPHOSPHAMIDE [Suspect]
     Indication: CHRONIC LYMPHOCYTIC LEUKAEMIA TRANSFORMATION
     Dates: start: 20030901, end: 20040201
  4. MABTHERA. MFR: NOT SPECIFIED [Suspect]
     Indication: CHRONIC LYMPHOCYTIC LEUKAEMIA TRANSFORMATION
     Dates: start: 20030901, end: 20060201
  5. PREDNISONE TAB [Suspect]
     Indication: CHRONIC LYMPHOCYTIC LEUKAEMIA TRANSFORMATION
     Dates: start: 20030901, end: 20040201
  6. CHLORAMBUCIL [Concomitant]
  7. FLUDARABINE PHOSPHATE [Concomitant]

REACTIONS (3)
  - JC VIRUS INFECTION [None]
  - MUSCLE TWITCHING [None]
  - PROGRESSIVE MULTIFOCAL LEUKOENCEPHALOPATHY [None]
